FAERS Safety Report 17992860 (Version 4)
Quarter: 2024Q3

REPORT INFORMATION
  Report Type: Spontaneous
  Country: US (occurrence: US)
  Receive Date: 20200708
  Receipt Date: 20240828
  Transmission Date: 20241017
  Serious: Yes (Other)
  Sender: GILEAD
  Company Number: US-GILEAD-2020-0478404

PATIENT
  Age: 69 Year
  Sex: Male

DRUGS (4)
  1. VIREAD [Suspect]
     Active Substance: TENOFOVIR DISOPROXIL FUMARATE
     Indication: HIV infection
     Dosage: UNK
     Route: 048
     Dates: start: 2013, end: 2016
  2. TRUVADA [Suspect]
     Active Substance: EMTRICITABINE\TENOFOVIR DISOPROXIL FUMARATE
     Indication: HIV infection
     Dosage: UNK
     Route: 048
     Dates: start: 2013, end: 2016
  3. TRUVADA [Suspect]
     Active Substance: EMTRICITABINE\TENOFOVIR DISOPROXIL FUMARATE
     Dosage: UNK
     Route: 048
     Dates: start: 201007, end: 201606
  4. DESCOVY [Concomitant]
     Active Substance: EMTRICITABINE\TENOFOVIR ALAFENAMIDE FUMARATE

REACTIONS (8)
  - Renal injury [Unknown]
  - Osteoporosis [Unknown]
  - Multiple fractures [Unknown]
  - Osteonecrosis [Unknown]
  - Renal impairment [Not Recovered/Not Resolved]
  - Skeletal injury [Unknown]
  - Bone density decreased [Unknown]
  - Bone loss [Unknown]

NARRATIVE: CASE EVENT DATE: 20120401
